FAERS Safety Report 6624025-0 (Version None)
Quarter: 2010Q1

REPORT INFORMATION
  Report Type: 
  Country: None (occurrence: None)
  Receive Date: 20100310
  Receipt Date: 20100228
  Transmission Date: 20100710
  Serious: Yes (Other)
  Sender: FDA-Public Use
  Company Number: PHHY2010MX11955

PATIENT
  Age: 90 Year
  Sex: Female

DRUGS (2)
  1. CO-DIOVAN [Suspect]
     Indication: HYPERTENSION
     Dosage: 1 TABLET (80 MG/ 12.5 MG) PER DAY
     Dates: start: 20080901
  2. IMIPRAMINE [Concomitant]

REACTIONS (1)
  - FALL [None]
